FAERS Safety Report 20434576 (Version 2)
Quarter: 2022Q3

REPORT INFORMATION
  Report Type: Report from Study
  Country: NL (occurrence: NL)
  Receive Date: 20220206
  Receipt Date: 20220811
  Transmission Date: 20221026
  Serious: Yes (Hospitalization, Other)
  Sender: FDA-Public Use
  Company Number: NL-NOVARTISPH-NVSC2022NL023117

PATIENT
  Age: 63 Year
  Sex: Female
  Weight: 65 kg

DRUGS (2)
  1. GILENYA [Suspect]
     Active Substance: FINGOLIMOD HYDROCHLORIDE
     Indication: Multiple sclerosis
     Dosage: 1 DOSAGE FORM, QD
     Route: 048
  2. GILENYA [Suspect]
     Active Substance: FINGOLIMOD HYDROCHLORIDE
     Dosage: 1 DOSAGE FORM, QD
     Route: 048
     Dates: start: 20140129

REACTIONS (2)
  - Facial paralysis [Not Recovered/Not Resolved]
  - Herpes zoster [Recovering/Resolving]

NARRATIVE: CASE EVENT DATE: 20220115
